FAERS Safety Report 10518781 (Version 1)
Quarter: 2014Q4

REPORT INFORMATION
  Report Type: Report from Study
  Country: US (occurrence: US)
  Receive Date: 20141015
  Receipt Date: 20141015
  Transmission Date: 20150528
  Serious: Yes (Other)
  Sender: FDA-Public Use
  Company Number: US-MERCK-2011SP026389

PATIENT
  Sex: Male
  Weight: 2.27 kg

DRUGS (2)
  1. PEGINTRON [Suspect]
     Active Substance: PEGINTERFERON ALFA-2B
     Dosage: UNK UNK, UNKNOWN
     Route: 064
  2. RIBAVIRIN. [Suspect]
     Active Substance: RIBAVIRIN
     Dosage: UNK UNK, UNKNOWN
     Route: 064

REACTIONS (3)
  - Foetal exposure during pregnancy [Unknown]
  - Haemoglobin decreased [Recovered/Resolved]
  - Jaundice [Recovered/Resolved]
